FAERS Safety Report 9388993 (Version 1)
Quarter: 2013Q3

REPORT INFORMATION
  Report Type: Spontaneous
  Country: PH (occurrence: PH)
  Receive Date: 20130708
  Receipt Date: 20130708
  Transmission Date: 20140515
  Serious: Yes (Death)
  Sender: FDA-Public Use
  Company Number: PH-009507513-1307PHL002848

PATIENT
  Age: 66 Year
  Sex: Female

DRUGS (1)
  1. JANUMET [Suspect]
     Dosage: 1 TABLET, ONCE A DAY

REACTIONS (2)
  - Disease complication [Fatal]
  - Breast cancer [Unknown]
